FAERS Safety Report 8190174 (Version 3)
Quarter: 2012Q4

REPORT INFORMATION
  Report Type: Report from Study
  Country: DE (occurrence: DE)
  Receive Date: 20111019
  Receipt Date: 20121108
  Transmission Date: 20130627
  Serious: Yes (Hospitalization)
  Sender: FDA-Public Use
  Company Number: DE-ROCHE-798390

PATIENT
  Age: 38 Year
  Sex: Female
  Weight: 75 kg

DRUGS (12)
  1. VEMURAFENIB [Suspect]
     Indication: METASTATIC MALIGNANT MELANOMA
     Dosage: last dose prior to sae :21/aug/2011
     Route: 048
     Dates: start: 20110607, end: 20110821
  2. VEMURAFENIB [Suspect]
     Route: 048
     Dates: start: 20110831
  3. GABAPENTIN [Concomitant]
     Route: 065
     Dates: start: 20110316
  4. LORAZEPAM [Concomitant]
     Route: 065
     Dates: start: 20110210
  5. LEVETIRACETAM [Concomitant]
     Route: 065
     Dates: start: 20110223
  6. LEVETIRACETAM [Concomitant]
     Route: 065
     Dates: start: 20110906, end: 20110906
  7. LEVETIRACETAM [Concomitant]
     Route: 065
     Dates: start: 20110907
  8. PANTOZOL [Concomitant]
     Route: 065
  9. ENOXAPARIN NATRIUM [Concomitant]
     Route: 065
  10. AMPHOTERICIN B [Concomitant]
     Route: 065
     Dates: start: 20110830
  11. HALOPERIDOL [Concomitant]
     Route: 065
     Dates: start: 20110901, end: 20110901
  12. HALOPERIDOL [Concomitant]
     Route: 065
     Dates: start: 20110902

REACTIONS (2)
  - Gastroenteritis [Recovered/Resolved]
  - Herpes zoster [Recovered/Resolved]
